FAERS Safety Report 9587193 (Version 1)
Quarter: 2013Q4

REPORT INFORMATION
  Report Type: Spontaneous
  Country: US (occurrence: US)
  Receive Date: 20131003
  Receipt Date: 20131003
  Transmission Date: 20140711
  Serious: Yes (Death, Life-Threatening, Hospitalization, Disabling)
  Sender: FDA-Public Use
  Company Number: US-GLAXOSMITHKLINE-A1040445A

PATIENT
  Age: 56 Year
  Sex: Female

DRUGS (8)
  1. TYKERB [Suspect]
     Indication: BREAST CANCER
     Dosage: 250MG FIVE TIMES PER DAY
     Route: 048
     Dates: start: 20130808
  2. ATENOLOL [Concomitant]
  3. ZANTAC [Concomitant]
  4. POTASSIUM CHLORIDE [Concomitant]
  5. VALIUM [Concomitant]
  6. DILAUDID [Concomitant]
  7. PROBIOTIC [Concomitant]
  8. DEXAMETHASONE [Concomitant]

REACTIONS (4)
  - Hospitalisation [Unknown]
  - Adverse event [Unknown]
  - Death [Fatal]
  - Disease progression [Unknown]
